FAERS Safety Report 7434488-9 (Version None)
Quarter: 2011Q2

REPORT INFORMATION
  Report Type: 
  Country: None (occurrence: None)
  Receive Date: 20110415
  Receipt Date: 20110404
  Transmission Date: 20111010
  Serious: Yes (Disabling, Other)
  Sender: FDA-Public Use
  Company Number: 028203

PATIENT
  Sex: Male
  Weight: 78 kg

DRUGS (9)
  1. KEPPRA [Suspect]
     Indication: EPILEPSY
     Dosage: 1000 MG, BID, ORAL
     Route: 048
     Dates: start: 20090101
  2. PREGABALIN [Suspect]
     Indication: EPILEPSY
     Dosage: 50, 450, 225MG BID , ORAL
     Route: 048
     Dates: start: 20070301
  3. PREGABALIN [Suspect]
     Indication: EPILEPSY
     Dosage: 50, 450, 225MG BID , ORAL
     Route: 048
     Dates: start: 20100101
  4. PREGABALIN [Suspect]
     Indication: EPILEPSY
     Dosage: 50, 450, 225MG BID , ORAL
     Route: 048
     Dates: start: 20100101
  5. OXCARBAZEPINE [Suspect]
     Indication: EPILEPSY
  6. BARBITURATES (UNSPECIFIED BARBITURATE) [Suspect]
     Indication: EPILEPSY
  7. CARBAMAZEPINE [Suspect]
     Indication: EPILEPSY
  8. LAMOTRIGINE [Suspect]
     Indication: EPILEPSY
  9. VALPROATE SODIUM [Suspect]
     Indication: EPILEPSY
     Dosage: 1000 MG, BID, ORAL
     Route: 048
     Dates: start: 20110101

REACTIONS (3)
  - OPTIC ATROPHY [None]
  - VISUAL ACUITY REDUCED [None]
  - VISUAL FIELD DEFECT [None]
